FAERS Safety Report 8435224-X (Version None)
Quarter: 2012Q2

REPORT INFORMATION
  Report Type: 
  Country: None (occurrence: None)
  Receive Date: 20120614
  Receipt Date: 20120606
  Transmission Date: 20120825
  Serious: Yes (Other)
  Sender: FDA-Public Use
  Company Number: ES-ASTELLAS-2012US004710

PATIENT
  Sex: Female

DRUGS (4)
  1. XELODA [Suspect]
     Indication: PANCREATIC CARCINOMA
     Dosage: 2000 MG, 1 IN 21 DAYS
     Route: 065
     Dates: start: 20120503, end: 20120309
  2. TAPENTADOL [Concomitant]
     Indication: PAIN
     Dosage: UNK
     Route: 065
  3. GEMCITABINE [Suspect]
     Indication: PANCREATIC CARCINOMA
     Dosage: 1600 MG, DAY 1, 8, 15
     Route: 042
     Dates: start: 20120503, end: 20120509
  4. TARCEVA [Suspect]
     Indication: PRODUCT USED FOR UNKNOWN INDICATION
     Dosage: UNK
     Route: 048

REACTIONS (1)
  - STRESS CARDIOMYOPATHY [None]
